FAERS Safety Report 20766463 (Version 2)
Quarter: 2022Q2

REPORT INFORMATION
  Report Type: Spontaneous
  Country: US (occurrence: US)
  Receive Date: 20220428
  Receipt Date: 20220603
  Transmission Date: 20220720
  Serious: No
  Sender: FDA-Public Use
  Company Number: US-JNJFOC-20220451762

PATIENT
  Age: 79 Year
  Sex: Male

DRUGS (20)
  1. ERLEADA [Suspect]
     Active Substance: APALUTAMIDE
     Indication: Prostate cancer
     Route: 048
     Dates: start: 20220117
  2. CLOPIDOGREL [Concomitant]
     Active Substance: CLOPIDOGREL BISULFATE
  3. FLONASE [Concomitant]
     Active Substance: FLUTICASONE PROPIONATE
  4. LUPRON [Concomitant]
     Active Substance: LEUPROLIDE ACETATE
  5. ROPINIROLE [Concomitant]
     Active Substance: ROPINIROLE
  6. TRIAMTERENE [Concomitant]
     Active Substance: TRIAMTERENE
  7. VITAMINS [Concomitant]
     Active Substance: VITAMINS
  8. FLAXSEED OIL [LINUM USITATISSIMUM OIL] [Concomitant]
  9. MAGNESIUM SALICYLATE [Concomitant]
     Active Substance: MAGNESIUM SALICYLATE
  10. ASPIRIN [Concomitant]
     Active Substance: ASPIRIN
  11. ELIGARD [Concomitant]
     Active Substance: LEUPROLIDE ACETATE
  12. CIPROFLOXACIN [Concomitant]
     Active Substance: CIPROFLOXACIN
  13. ROSUVASTATIN [Concomitant]
     Active Substance: ROSUVASTATIN
     Route: 065
  14. TRIAMCINOLONE [Concomitant]
     Active Substance: TRIAMCINOLONE
     Route: 065
  15. ALGAL 900 DHA [Concomitant]
     Route: 065
  16. MAGNESIUM [Concomitant]
     Active Substance: MAGNESIUM
     Route: 048
  17. SENNA LEAF [Concomitant]
     Active Substance: SENNA LEAF
     Route: 065
  18. ZINC [Concomitant]
     Active Substance: ZINC
     Route: 065
  19. ASCORBIC ACID [Concomitant]
     Active Substance: ASCORBIC ACID
     Route: 065
  20. VITAMIN D3 [Concomitant]
     Active Substance: CHOLECALCIFEROL
     Route: 065

REACTIONS (9)
  - Fatigue [Not Recovered/Not Resolved]
  - Bone pain [Not Recovered/Not Resolved]
  - Constipation [Not Recovered/Not Resolved]
  - Dyspnoea [Not Recovered/Not Resolved]
  - Visual impairment [Not Recovered/Not Resolved]
  - Somnolence [Not Recovered/Not Resolved]
  - Flushing [Not Recovered/Not Resolved]
  - Hunger [Not Recovered/Not Resolved]
  - Muscle spasms [Not Recovered/Not Resolved]

NARRATIVE: CASE EVENT DATE: 20220130
